FAERS Safety Report 9275266 (Version 1)
Quarter: 2013Q2

REPORT INFORMATION
  Report Type: Spontaneous
  Country: US (occurrence: None)
  Receive Date: 20130430
  Receipt Date: 20130430
  Transmission Date: 20140414
  Serious: Yes (Other)
  Sender: FDA-Public Use
  Company Number: ACO_35719_2013

PATIENT
  Age: 66 Year
  Sex: Female
  Weight: 74.4 kg

DRUGS (5)
  1. AMPYRA [Suspect]
     Indication: GAIT DISTURBANCE
     Route: 048
     Dates: start: 2012
  2. SIMVASTATIN (SIMVASTATIN) [Concomitant]
  3. MACROBID (NITROFURANTOIN) [Concomitant]
  4. PROVILGIL (MODAFINIL) [Concomitant]
  5. CARVEDILOL (CARVEDILOL) [Concomitant]

REACTIONS (2)
  - Hydronephrosis [None]
  - Fall [None]
